FAERS Safety Report 8393121-2 (Version None)
Quarter: 2012Q2

REPORT INFORMATION
  Report Type: 
  Country: None (occurrence: None)
  Receive Date: 20120529
  Receipt Date: 20120403
  Transmission Date: 20120825
  Serious: No
  Sender: FDA-Public Use
  Company Number: US-ABBOTT-12P-163-0923670-00

PATIENT
  Sex: Male
  Weight: 138.47 kg

DRUGS (7)
  1. ANDROGEL [Suspect]
     Indication: BLOOD TESTOSTERONE DECREASED
     Dates: start: 20120301
  2. FISH OIL [Concomitant]
     Indication: MEDICAL DIET
  3. SIMVASTATIN [Concomitant]
     Indication: BLOOD CHOLESTEROL INCREASED
  4. METFORMIN HCL [Concomitant]
     Indication: DIABETES MELLITUS
  5. LISINOPRIL [Concomitant]
     Indication: HYPERTENSION
     Dates: start: 20120201
  6. MULTI-VITAMIN [Concomitant]
     Indication: VITAMIN SUPPLEMENTATION
  7. AGELESS MALE [Concomitant]
     Indication: SUPPLEMENTATION THERAPY

REACTIONS (3)
  - ERECTILE DYSFUNCTION [None]
  - WEIGHT INCREASED [None]
  - SPONTANEOUS PENILE ERECTION [None]
